FAERS Safety Report 7701148-6 (Version None)
Quarter: 2011Q3

REPORT INFORMATION
  Report Type: 
  Country: None (occurrence: None)
  Receive Date: 20110822
  Receipt Date: 20110810
  Transmission Date: 20111222
  Serious: Yes (Other)
  Sender: FDA-Public Use
  Company Number: US-ROCHE-796819

PATIENT
  Age: 73 Year
  Sex: Female
  Weight: 102 kg

DRUGS (4)
  1. BEVACIZUMAB [Suspect]
     Dosage: IV OVER 30-90 MINUTES ON DAY 1, LASE DOSE ON 18 JULY 2011, TOTAL DOSE: 1515 MG
     Route: 042
     Dates: start: 20110627
  2. FLUOXETINE [Suspect]
     Route: 065
  3. FLUOXETINE [Suspect]
     Route: 065
  4. FOSBRETABULIN [Suspect]
     Dosage: FREQUENCY: OVER 10 MIN ON DAY 1. LAST DOSE PRIOR TO SAE  18 JULY 2011.
     Route: 042
     Dates: start: 20110627

REACTIONS (2)
  - HYPERTENSION [None]
  - ELECTROCARDIOGRAM QT PROLONGED [None]
